FAERS Safety Report 15498466 (Version 1)
Quarter: 2018Q4

REPORT INFORMATION
  Report Type: Spontaneous
  Country: US (occurrence: US)
  Receive Date: 20181005
  Receipt Date: 20181005
  Transmission Date: 20190205
  Serious: Yes (Other)
  Sender: FDA-Public Use
  Company Number: None

PATIENT
  Age: 39 Year
  Sex: Female
  Weight: 76.66 kg

DRUGS (4)
  1. AMLODIPINE BESYLATE 5 MG TB ONCE DAILY [Concomitant]
  2. FAMOTIDINE 20 MG TB TWICE DAILY [Concomitant]
  3. HYDROCHLOROTHIAZIDE. [Suspect]
     Active Substance: HYDROCHLOROTHIAZIDE
     Indication: HYPERTENSION
     Dosage: ?          QUANTITY:1;?
     Route: 048
     Dates: start: 20180614, end: 20180925
  4. VITAMIN D3 SUPPLEMENT 125 MCG 5000IU ONCE DAILY [Concomitant]

REACTIONS (7)
  - Pain in extremity [None]
  - Impaired work ability [None]
  - Recalled product [None]
  - Product complaint [None]
  - Chest pain [None]
  - Blood potassium abnormal [None]
  - Oesophagitis [None]

NARRATIVE: CASE EVENT DATE: 20180924
